FAERS Safety Report 5273545-2 (Version None)
Quarter: 2007Q1

REPORT INFORMATION
  Report Type: 
  Country: None (occurrence: None)
  Receive Date: 20070321
  Receipt Date: 20070321
  Transmission Date: 20070707
  Serious: Yes (Hospitalization)
  Sender: FDA-Public Use
  Company Number: None

PATIENT
  Age: 41 Year
  Sex: Male
  Weight: 73 kg

DRUGS (9)
  1. ZOMETA [Suspect]
     Indication: BRAIN NEOPLASM
     Dosage: 4MG Q12 WEEKS IV
     Route: 042
     Dates: start: 20060802
  2. ZOMETA [Suspect]
     Indication: OSTEOPOROSIS
     Dosage: 4MG Q12 WEEKS IV
     Route: 042
     Dates: start: 20060802
  3. ZOMETA [Suspect]
     Indication: BRAIN NEOPLASM
     Dosage: 4MG Q12 WEEKS IV
     Route: 042
     Dates: start: 20061031
  4. ZOMETA [Suspect]
     Indication: OSTEOPOROSIS
     Dosage: 4MG Q12 WEEKS IV
     Route: 042
     Dates: start: 20061031
  5. ZOMETA [Suspect]
     Indication: BRAIN NEOPLASM
     Dosage: 4MG Q12 WEEKS IV
     Route: 042
     Dates: start: 20070207
  6. ZOMETA [Suspect]
     Indication: OSTEOPOROSIS
     Dosage: 4MG Q12 WEEKS IV
     Route: 042
     Dates: start: 20070207
  7. DILANTIN [Concomitant]
  8. NEXIUM [Concomitant]
  9. DECADRON [Concomitant]

REACTIONS (4)
  - APHASIA [None]
  - MENTAL STATUS CHANGES [None]
  - PAIN [None]
  - SUBARACHNOID HAEMORRHAGE [None]
